FAERS Safety Report 4956484-3 (Version None)
Quarter: 2006Q1

REPORT INFORMATION
  Report Type: 
  Country: None (occurrence: None)
  Receive Date: 20060329
  Receipt Date: 20060320
  Transmission Date: 20060701
  Serious: Yes (Hospitalization)
  Sender: FDA-Public Use
  Company Number: US-MERCK-0603USA03153

PATIENT
  Age: 84 Year
  Sex: Female

DRUGS (5)
  1. FOSAMAX [Suspect]
     Indication: OSTEOPOROSIS
     Route: 048
     Dates: start: 20060213, end: 20060301
  2. ESTROGENS (UNSPECIFIED) [Concomitant]
     Route: 065
  3. DIOVAN [Concomitant]
     Route: 065
  4. CELEBREX [Concomitant]
     Route: 065
  5. ACIPHEX [Concomitant]
     Route: 065

REACTIONS (3)
  - DYSPHAGIA [None]
  - MUSCLE SPASMS [None]
  - PAIN [None]
